FAERS Safety Report 5701710-6 (Version None)
Quarter: 2008Q2

REPORT INFORMATION
  Report Type: 
  Country: None (occurrence: None)
  Receive Date: 20080411
  Receipt Date: 20080404
  Transmission Date: 20081010
  Serious: Yes (Death)
  Sender: FDA-Public Use
  Company Number: ES-AVENTIS-200813043GDDC

PATIENT
  Age: 78 Year
  Sex: Male
  Weight: 76 kg

DRUGS (6)
  1. DOCETAXEL [Suspect]
     Indication: PROSTATE CANCER
     Route: 042
     Dates: start: 20080229, end: 20080229
  2. ESTRAMUSTINE [Suspect]
     Route: 048
     Dates: start: 20080103, end: 20080303
  3. OMEPRAZOLE [Concomitant]
     Route: 048
  4. TRIPTORELIN [Concomitant]
     Indication: PROSTATE CANCER
  5. DIAMICRON [Concomitant]
     Indication: DIABETES MELLITUS
     Route: 048
  6. ADIRO [Concomitant]
     Route: 048

REACTIONS (1)
  - SUDDEN DEATH [None]
